FAERS Safety Report 9285066 (Version 1)
Quarter: 2013Q2

REPORT INFORMATION
  Report Type: Report from Study
  Country: AR (occurrence: AR)
  Receive Date: 20130513
  Receipt Date: 20130513
  Transmission Date: 20140414
  Serious: Yes (Other)
  Sender: FDA-Public Use
  Company Number: AR-ROCHE-1223262

PATIENT
  Age: 74 Year
  Sex: Male

DRUGS (2)
  1. OMALIZUMAB [Suspect]
     Indication: PRODUCT USED FOR UNKNOWN INDICATION
     Route: 065
  2. OMALIZUMAB [Suspect]
     Route: 065
     Dates: start: 20130424

REACTIONS (2)
  - Bronchospasm [Unknown]
  - Oropharyngeal pain [Unknown]
